FAERS Safety Report 8293291-0 (Version None)
Quarter: 2012Q2

REPORT INFORMATION
  Report Type: 
  Country: None (occurrence: None)
  Receive Date: 20120417
  Receipt Date: 20120223
  Transmission Date: 20120825
  Serious: No
  Sender: FDA-Public Use
  Company Number: US-ASTRAZENECA-2012SE12549

PATIENT
  Age: 80 Year
  Sex: Female
  Weight: 45.8 kg

DRUGS (7)
  1. NEXIUM [Suspect]
     Indication: GASTROOESOPHAGEAL REFLUX DISEASE
     Route: 048
  2. CALCIUM CARBONATE [Concomitant]
  3. CYMBALTA [Concomitant]
     Indication: NEURALGIA
  4. LEVOXYL [Concomitant]
     Indication: THYROID DISORDER
  5. GABAPENTIN [Concomitant]
     Indication: NEURALGIA
  6. ZOLPIDEM [Concomitant]
     Indication: SLEEP DISORDER
  7. SIMVASTATIN [Concomitant]
     Indication: BLOOD CHOLESTEROL

REACTIONS (7)
  - THROAT IRRITATION [None]
  - GASTROOESOPHAGEAL REFLUX DISEASE [None]
  - CONSTIPATION [None]
  - DYSPEPSIA [None]
  - FLATULENCE [None]
  - ABDOMINAL PAIN [None]
  - GASTROINTESTINAL SOUNDS ABNORMAL [None]
